FAERS Safety Report 5700596-3 (Version None)
Quarter: 2008Q2

REPORT INFORMATION
  Report Type: 
  Country: None (occurrence: None)
  Receive Date: 20080409
  Receipt Date: 20080409
  Transmission Date: 20081010
  Serious: Yes (Life-Threatening)
  Sender: FDA-Public Use
  Company Number: None

PATIENT
  Age: 40 Year
  Sex: Male
  Weight: 77.1115 kg

DRUGS (2)
  1. CHANTIX [Suspect]
     Indication: SMOKING CESSATION THERAPY
     Dosage: 1 MG 2 TIME A DAY MOUTH
     Route: 048
     Dates: start: 20071003
  2. CHANTIX [Suspect]
     Indication: SMOKING CESSATION THERAPY
     Dosage: 1 MG 2 TIME A DAY MOUTH
     Route: 048
     Dates: start: 20071226

REACTIONS (4)
  - ANGER [None]
  - EMOTIONAL DISORDER [None]
  - HOMICIDAL IDEATION [None]
  - SUICIDAL IDEATION [None]
